FAERS Safety Report 14013313 (Version 1)
Quarter: 2017Q3

REPORT INFORMATION
  Report Type: Spontaneous
  Country: US (occurrence: US)
  Receive Date: 20170926
  Receipt Date: 20170926
  Transmission Date: 20171128
  Serious: No
  Sender: FDA-Public Use
  Company Number: US-TAKEDA-2017TUS019831

PATIENT
  Age: 44 Year
  Sex: Female
  Weight: 55.78 kg

DRUGS (2)
  1. COLESTID [Concomitant]
     Active Substance: COLESTIPOL HYDROCHLORIDE
     Indication: CROHN^S DISEASE
     Dosage: UNK
  2. ENTYVIO [Suspect]
     Active Substance: VEDOLIZUMAB
     Indication: CROHN^S DISEASE
     Dosage: UNK
     Route: 065
     Dates: end: 201708

REACTIONS (1)
  - Drug specific antibody [Unknown]

NARRATIVE: CASE EVENT DATE: 201708
